FAERS Safety Report 7552885-8 (Version None)
Quarter: 2011Q2

REPORT INFORMATION
  Report Type: 
  Country: None (occurrence: None)
  Receive Date: 20110616
  Receipt Date: 20110303
  Transmission Date: 20111010
  Serious: No
  Sender: FDA-Public Use
  Company Number: US-ASTRAZENECA-2011SE11834

PATIENT
  Age: 88 Year
  Sex: Female
  Weight: 49.4 kg

DRUGS (6)
  1. COUMADIN [Concomitant]
     Indication: PULMONARY EMBOLISM
  2. FASLODEX [Suspect]
     Indication: BREAST CANCER
     Route: 030
  3. ARIMIDEX NAME BRAND [Concomitant]
     Indication: BREAST CANCER
  4. ARRADIA [Concomitant]
     Indication: BONE DISORDER
  5. ATENOLOL [Concomitant]
     Indication: HYPERTENSION
  6. VITAMIN TAB [Concomitant]

REACTIONS (1)
  - URINE ODOUR ABNORMAL [None]
